FAERS Safety Report 8353858-8 (Version None)
Quarter: 2012Q2

REPORT INFORMATION
  Report Type: 
  Country: None (occurrence: None)
  Receive Date: 20120511
  Receipt Date: 20120117
  Transmission Date: 20120825
  Serious: No
  Sender: FDA-Public Use
  Company Number: US-GLAXOSMITHKLINE-A0962005A

PATIENT
  Age: 56 Year
  Sex: Female

DRUGS (4)
  1. TYKERB [Suspect]
     Indication: PRODUCT USED FOR UNKNOWN INDICATION
     Dosage: 1000MGD PER DAY
     Route: 048
     Dates: start: 20120110
  2. HERCEPTIN [Concomitant]
     Route: 042
  3. SOAP [Suspect]
  4. CHEMOTHERAPY [Concomitant]
     Route: 065
     Dates: end: 20120130

REACTIONS (2)
  - DIARRHOEA [None]
  - DYSURIA [None]
